FAERS Safety Report 4966511-5 (Version None)
Quarter: 2006Q2

REPORT INFORMATION
  Report Type: 
  Country: None (occurrence: None)
  Receive Date: 20060407
  Receipt Date: 20051220
  Transmission Date: 20061013
  Serious: Yes (Hospitalization)
  Sender: FDA-Public Use
  Company Number: PHHO2005AU19713

PATIENT
  Age: 62 Year
  Sex: Male

DRUGS (4)
  1. RADIOTHERAPY [Concomitant]
     Indication: PROSTATE CANCER
     Dosage: 2 GY PER FRACTION
     Dates: start: 20060214
  2. ZOLEDRONIC ACID [Suspect]
     Indication: METASTASES TO BONE
     Dosage: 4 MG, Q3MO
     Route: 042
     Dates: start: 20050909
  3. LUCRIN [Suspect]
     Indication: PROSTATE CANCER
     Dosage: 22.5 MG, Q3MO
     Dates: start: 20050905, end: 20051028
  4. LUCRIN [Suspect]
     Dosage: NO TREATMENT
     Dates: start: 20051029

REACTIONS (4)
  - DUODENITIS [None]
  - GASTRITIS EROSIVE [None]
  - GASTROOESOPHAGEAL REFLUX DISEASE [None]
  - NON-CARDIAC CHEST PAIN [None]
